FAERS Safety Report 4406793-1 (Version None)
Quarter: 2004Q3

REPORT INFORMATION
  Report Type: 
  Country: None (occurrence: None)
  Receive Date: 20040715
  Receipt Date: 20040707
  Transmission Date: 20050211
  Serious: Yes (Other)
  Sender: FDA-Public Use
  Company Number: 2004JP001330

PATIENT
  Age: 25 Year
  Sex: Male
  Weight: 30 kg

DRUGS (5)
  1. PROGRAF [Suspect]
     Indication: RENAL TRANSPLANT
     Dosage: 0.9 MG
     Dates: start: 20040629
  2. SOLU-MEDROL [Concomitant]
  3. PREDNISOLONE [Concomitant]
  4. SIMULECT [Concomitant]
  5. CELLCEPT [Concomitant]

REACTIONS (3)
  - DYSTONIA [None]
  - MUSCLE SPASTICITY [None]
  - TREMOR [None]
